FAERS Safety Report 13799998 (Version 1)
Quarter: 2017Q3

REPORT INFORMATION
  Report Type: Report from Study
  Country: CA (occurrence: CA)
  Receive Date: 20170727
  Receipt Date: 20170727
  Transmission Date: 20171127
  Serious: Yes (Other)
  Sender: FDA-Public Use
  Company Number: CA-HLSUS-2017-CA-000698

PATIENT
  Age: 28 Year
  Sex: Male
  Weight: 73 kg

DRUGS (1)
  1. CLOZARIL [Suspect]
     Active Substance: CLOZAPINE
     Route: 048
     Dates: start: 20120216

REACTIONS (1)
  - Conduction disorder [Unknown]

NARRATIVE: CASE EVENT DATE: 20170718
